FAERS Safety Report 8154390-7 (Version None)
Quarter: 2012Q1

REPORT INFORMATION
  Report Type: 
  Country: None (occurrence: None)
  Receive Date: 20120103
  Receipt Date: 20110824
  Transmission Date: 20120608
  Serious: No
  Sender: FDA-Public Use
  Company Number: AE-2011-00915

PATIENT
  Age: 54 Year
  Sex: Female
  Weight: 67.586 kg

DRUGS (5)
  1. INCIVEK [Suspect]
     Dosage: 2250 MG (750 MG, 1 IN 8 HR), ORAL
     Route: 048
     Dates: start: 20110720
  2. ATENOLOL [Concomitant]
  3. PEGASYS [Concomitant]
  4. REBETOL [Concomitant]
  5. EXFORGE [Concomitant]

REACTIONS (7)
  - PROCTALGIA [None]
  - TOOTHACHE [None]
  - FATIGUE [None]
  - PYREXIA [None]
  - HEADACHE [None]
  - MALNUTRITION [None]
  - FAECES HARD [None]
